FAERS Safety Report 11674172 (Version 2)
Quarter: 2015Q4

REPORT INFORMATION
  Report Type: Spontaneous
  Country: US (occurrence: US)
  Receive Date: 20151028
  Receipt Date: 20151102
  Transmission Date: 20160304
  Serious: Yes (Hospitalization)
  Sender: FDA-Public Use
  Company Number: US-JNJFOC-20151017149

PATIENT
  Age: 47 Year
  Sex: Male

DRUGS (20)
  1. RISPERIDONE. [Suspect]
     Active Substance: RISPERIDONE
     Indication: AGGRESSION
     Route: 065
  2. TOPIRAMATE. [Suspect]
     Active Substance: TOPIRAMATE
     Indication: SELF INJURIOUS BEHAVIOUR
     Route: 065
  3. QUETIAPINE [Suspect]
     Active Substance: QUETIAPINE
     Indication: AGGRESSION
     Route: 065
  4. TRAZODONE [Suspect]
     Active Substance: TRAZODONE HYDROCHLORIDE
     Indication: SELF INJURIOUS BEHAVIOUR
     Route: 065
  5. HALOPERIDOL. [Suspect]
     Active Substance: HALOPERIDOL
     Indication: SELF INJURIOUS BEHAVIOUR
     Route: 065
  6. HALOPERIDOL. [Suspect]
     Active Substance: HALOPERIDOL
     Indication: AGGRESSION
     Route: 065
  7. TOPIRAMATE. [Suspect]
     Active Substance: TOPIRAMATE
     Indication: AGGRESSION
     Route: 065
  8. QUETIAPINE [Suspect]
     Active Substance: QUETIAPINE
     Indication: SELF INJURIOUS BEHAVIOUR
     Route: 065
  9. PAROXETINE [Suspect]
     Active Substance: PAROXETINE\PAROXETINE HYDROCHLORIDE
     Indication: AGGRESSION
     Route: 065
  10. OLANZAPINE. [Suspect]
     Active Substance: OLANZAPINE
     Indication: SELF INJURIOUS BEHAVIOUR
     Route: 065
  11. RISPERIDONE. [Suspect]
     Active Substance: RISPERIDONE
     Indication: SELF INJURIOUS BEHAVIOUR
     Route: 065
  12. BUPROPION. [Suspect]
     Active Substance: BUPROPION
     Indication: SELF INJURIOUS BEHAVIOUR
     Route: 065
  13. PAROXETINE [Suspect]
     Active Substance: PAROXETINE\PAROXETINE HYDROCHLORIDE
     Indication: SELF INJURIOUS BEHAVIOUR
     Route: 065
  14. CLONAZEPAM. [Suspect]
     Active Substance: CLONAZEPAM
     Indication: AGGRESSION
     Route: 065
  15. NALTREXONE [Suspect]
     Active Substance: NALTREXONE
     Indication: SELF INJURIOUS BEHAVIOUR
     Route: 065
  16. CLONAZEPAM. [Suspect]
     Active Substance: CLONAZEPAM
     Indication: SELF INJURIOUS BEHAVIOUR
     Route: 065
  17. NALTREXONE [Suspect]
     Active Substance: NALTREXONE
     Indication: AGGRESSION
     Route: 065
  18. OLANZAPINE. [Suspect]
     Active Substance: OLANZAPINE
     Indication: AGGRESSION
     Route: 065
  19. BUPROPION. [Suspect]
     Active Substance: BUPROPION
     Indication: AGGRESSION
     Route: 065
  20. TRAZODONE [Suspect]
     Active Substance: TRAZODONE HYDROCHLORIDE
     Indication: AGGRESSION
     Route: 065

REACTIONS (2)
  - Aggression [Unknown]
  - Drug ineffective [Unknown]
